FAERS Safety Report 16072754 (Version 2)
Quarter: 2019Q2

REPORT INFORMATION
  Report Type: Spontaneous
  Country: US (occurrence: US)
  Receive Date: 20190314
  Receipt Date: 20190416
  Transmission Date: 20190711
  Serious: Yes (Hospitalization, Other)
  Sender: FDA-Public Use
  Company Number: US-ELI_LILLY_AND_COMPANY-US201903003435

PATIENT
  Sex: Male

DRUGS (3)
  1. BASAGLAR [Suspect]
     Active Substance: INSULIN GLARGINE
     Dosage: 14 IU, EACH MORNING
     Route: 065
  2. HUMALOG [Suspect]
     Active Substance: INSULIN LISPRO
     Indication: PRODUCT USED FOR UNKNOWN INDICATION
     Dosage: 10 IU, PRN
     Route: 065
  3. BASAGLAR [Suspect]
     Active Substance: INSULIN GLARGINE
     Indication: PRODUCT USED FOR UNKNOWN INDICATION
     Dosage: 30 IU, EACH EVENING
     Route: 065

REACTIONS (12)
  - Polyp [Unknown]
  - Paraesthesia [Unknown]
  - Blood glucose decreased [Unknown]
  - Pain in extremity [Unknown]
  - Cerebrovascular accident [Unknown]
  - White blood cell count increased [Unknown]
  - Inappropriate schedule of product administration [Unknown]
  - Musculoskeletal disorder [Not Recovered/Not Resolved]
  - Diverticulitis [Recovering/Resolving]
  - Blood glucose increased [Unknown]
  - Gait disturbance [Not Recovered/Not Resolved]
  - Pain [Unknown]

NARRATIVE: CASE EVENT DATE: 20180915
